FAERS Safety Report 24316042 (Version 3)
Quarter: 2025Q3

REPORT INFORMATION
  Report Type: Spontaneous
  Country: EU (occurrence: EU)
  Receive Date: 20240913
  Receipt Date: 20250917
  Transmission Date: 20251020
  Serious: Yes (Other)
  Sender: MSN LABORATORIES PRIVATE LIMITED
  Company Number: EU-MSNLABS-2024MSNLIT01929

PATIENT

DRUGS (9)
  1. PREGABALIN [Suspect]
     Active Substance: PREGABALIN
     Indication: Bipolar II disorder
     Dosage: 50 MG/DAY
     Route: 048
  2. PREGABALIN [Suspect]
     Active Substance: PREGABALIN
     Indication: Anxiety
     Dosage: 100 MG/DAY
     Route: 048
  3. PREGABALIN [Suspect]
     Active Substance: PREGABALIN
     Indication: Alcoholism
  4. PREGABALIN [Suspect]
     Active Substance: PREGABALIN
     Indication: Depression
  5. PREGABALIN [Suspect]
     Active Substance: PREGABALIN
     Indication: Alcohol use disorder
  6. QUETIAPINE [Concomitant]
     Active Substance: QUETIAPINE
     Indication: Bipolar II disorder
     Dosage: 200 MG/DAY
     Route: 065
  7. QUETIAPINE [Concomitant]
     Active Substance: QUETIAPINE
     Route: 048
  8. QUETIAPINE [Concomitant]
     Active Substance: QUETIAPINE
  9. QUETIAPINE [Concomitant]
     Active Substance: QUETIAPINE

REACTIONS (9)
  - Self-destructive behaviour [Recovered/Resolved]
  - Intentional self-injury [Recovering/Resolving]
  - Drug ineffective for unapproved indication [Recovered/Resolved]
  - Self-injurious ideation [Recovering/Resolving]
  - Condition aggravated [Recovering/Resolving]
  - Suicidal ideation [Recovered/Resolved]
  - Depressive symptom [Recovered/Resolved]
  - Crying [Recovering/Resolving]
  - Feeling of despair [Recovering/Resolving]
